FAERS Safety Report 9506076 (Version 1)
Quarter: 2013Q1

REPORT INFORMATION
  Report Type: Spontaneous
  Country: US (occurrence: None)
  Receive Date: 20130305
  Receipt Date: 20130305
  Transmission Date: 20140127
  Serious: Yes (Other)
  Sender: FDA-Public Use
  Company Number: 163-21880-12022054

PATIENT
  Age: 77 Year
  Sex: Female

DRUGS (2)
  1. REVLIMID (LENALIDOMIDE) (CAPSULES) [Suspect]
     Indication: PLASMA CELL MYELOMA
     Dosage: CAPSULE, 5 MG, DAILY X 21/28 DAYS, PO
     Dates: start: 201006
  2. PREDNISONE [Concomitant]

REACTIONS (1)
  - Pneumonia [None]
